FAERS Safety Report 19980852 (Version 2)
Quarter: 2021Q4

REPORT INFORMATION
  Report Type: Spontaneous
  Country: JP (occurrence: JP)
  Receive Date: 20211021
  Receipt Date: 20211231
  Transmission Date: 20220303
  Serious: Yes (Other)
  Sender: FDA-Public Use
  Company Number: JP-BAYER-2021A229930

PATIENT
  Age: 48 Year
  Sex: Male

DRUGS (1)
  1. IOPAMIRON [Suspect]
     Active Substance: IOPAMIDOL
     Indication: Computerised tomogram coronary artery
     Dosage: 80 ML, SINGLE, LEFT ELBOW MIDSECTION
     Route: 042
     Dates: start: 20211012, end: 20211012

REACTIONS (3)
  - Acute myocardial infarction [None]
  - Thrombosis [Unknown]
  - Discomfort [Unknown]

NARRATIVE: CASE EVENT DATE: 20211012
